FAERS Safety Report 17539507 (Version 3)
Quarter: 2020Q4

REPORT INFORMATION
  Report Type: Spontaneous
  Country: US (occurrence: US)
  Receive Date: 20200313
  Receipt Date: 20201009
  Transmission Date: 20210113
  Serious: No
  Sender: FDA-Public Use
  Company Number: US-PFIZER INC-2020109267

PATIENT
  Age: 87 Year
  Sex: Female

DRUGS (1)
  1. LYRICA [Suspect]
     Active Substance: PREGABALIN
     Indication: PAIN
     Dosage: UNK

REACTIONS (5)
  - Cough [Unknown]
  - Aggression [Unknown]
  - Pharyngeal disorder [Unknown]
  - Irritability [Unknown]
  - Mobility decreased [Unknown]
